FAERS Safety Report 8895920 (Version 1)
Quarter: 2012Q4

REPORT INFORMATION
  Report Type: 
  Country: US (occurrence: US)
  Receive Date: 20121107
  Receipt Date: 20121107
  Transmission Date: 20130627
  Serious: No
  Sender: FDA-Public Use
  Company Number: US-ASTRAZENECA-2012SE26942

PATIENT
  Age: 11 Year
  Sex: Female
  Weight: 37.2 kg

DRUGS (1)
  1. ZOMIG [Suspect]
     Indication: MIGRAINE
     Route: 048
     Dates: start: 20120424, end: 20120424

REACTIONS (5)
  - Pallor [Recovered/Resolved]
  - Tremor [Recovered/Resolved]
  - Abdominal pain [Not Recovered/Not Resolved]
  - Heart rate increased [Recovered/Resolved]
  - Off label use [Unknown]
